FAERS Safety Report 12844434 (Version 2)
Quarter: 2016Q4

REPORT INFORMATION
  Report Type: Report from Study
  Country: BR (occurrence: BR)
  Receive Date: 20161013
  Receipt Date: 20161027
  Transmission Date: 20170207
  Serious: Yes (Life-Threatening, Other)
  Sender: FDA-Public Use
  Company Number: PHHY2016BR140708

PATIENT
  Age: 88 Year
  Sex: Female
  Weight: 40 kg

DRUGS (2)
  1. EXELON PATCH [Suspect]
     Active Substance: RIVASTIGMINE
     Dosage: 9.5 MG, QD PATCH 10 (CM2)
     Route: 062
     Dates: start: 20161006
  2. EXELON PATCH [Suspect]
     Active Substance: RIVASTIGMINE
     Indication: DEMENTIA ALZHEIMER^S TYPE
     Dosage: 4.6 MG, QD PATCH 5 (CM2)
     Route: 062
     Dates: start: 201602, end: 20161006

REACTIONS (8)
  - Labyrinthitis [Unknown]
  - Dizziness [Unknown]
  - Malaise [Recovering/Resolving]
  - Feeling abnormal [Unknown]
  - Syncope [Unknown]
  - Hyperhidrosis [Unknown]
  - Incorrect drug administration duration [Unknown]
  - Head discomfort [Unknown]

NARRATIVE: CASE EVENT DATE: 20161008
